FAERS Safety Report 7568054-1 (Version None)
Quarter: 2011Q2

REPORT INFORMATION
  Report Type: 
  Country: None (occurrence: None)
  Receive Date: 20110616
  Receipt Date: 20110531
  Transmission Date: 20111010
  Serious: Yes (Other)
  Sender: FDA-Public Use
  Company Number: FK201101121

PATIENT
  Age: 30 Year
  Sex: Female

DRUGS (5)
  1. LETROZOLE [Suspect]
     Indication: BREAST CANCER
  2. BISPHOSPHONATES (BISPHOSPHONATES) (BISPHOSPHONIATES) [Suspect]
     Indication: BREAST CANCER
  3. PACLITAXEL [Suspect]
     Indication: BREAST CANCER
     Dosage: 90 MG/M2, /WEEK
     Dates: start: 20071101, end: 20080401
  4. GONADORELIN INJ [Suspect]
     Indication: BREAST CANCER
  5. BEVACIZUMAB (BEVACIZUMAB) (BEVACIZUMAB) [Suspect]
     Indication: BREAST CANCER
     Dosage: 10 MG/KG
     Dates: start: 20071101, end: 20090201

REACTIONS (9)
  - NEUROTOXICITY [None]
  - ASTHENIA [None]
  - POLLAKIURIA [None]
  - FATIGUE [None]
  - DYSPHONIA [None]
  - MUCOSAL INFLAMMATION [None]
  - EPISTAXIS [None]
  - HYPERTENSION [None]
  - DIZZINESS [None]
